FAERS Safety Report 6595827-4 (Version None)
Quarter: 2010Q1

REPORT INFORMATION
  Report Type: 
  Country: None (occurrence: None)
  Receive Date: 20100223
  Receipt Date: 20100209
  Transmission Date: 20100710
  Serious: Yes (Hospitalization, Other)
  Sender: FDA-Public Use
  Company Number: US-ELI_LILLY_AND_COMPANY-US201002004684

PATIENT
  Sex: Female

DRUGS (9)
  1. FORTEO [Suspect]
     Indication: OSTEOPOROSIS
     Dosage: 20 UG, DAILY (1/D)
     Dates: start: 20091101, end: 20100121
  2. ASACOL [Concomitant]
  3. COZAAR [Concomitant]
  4. FUROSEMIDE [Concomitant]
  5. POTASSIUM                          /00031402/ [Concomitant]
     Dosage: UNK, QOD
  6. AMLODIPINE [Concomitant]
  7. PREVACID [Concomitant]
  8. VITAMINS NOS [Concomitant]
  9. ACIDOPHILUS [Concomitant]

REACTIONS (5)
  - ABDOMINAL PAIN [None]
  - ASTHENIA [None]
  - DIARRHOEA [None]
  - DIVERTICULUM [None]
  - HAEMATOCHEZIA [None]
